FAERS Safety Report 6282522-4 (Version None)
Quarter: 2009Q3

REPORT INFORMATION
  Report Type: 
  Country: None (occurrence: None)
  Receive Date: 20090724
  Receipt Date: 20090714
  Transmission Date: 20100115
  Serious: Yes (Other)
  Sender: FDA-Public Use
  Company Number: US-NOVOPROD-286116

PATIENT
  Age: 63 Year
  Sex: Male

DRUGS (8)
  1. NOVOLIN 70/30 [Suspect]
     Indication: INSULIN-REQUIRING TYPE 2 DIABETES MELLITUS
     Dosage: UNK, UNK
     Route: 058
     Dates: start: 20060101
  2. LANTUS [Concomitant]
     Indication: INSULIN-REQUIRING TYPE 2 DIABETES MELLITUS
     Route: 058
  3. METFORMIN HCL [Concomitant]
     Indication: TYPE 2 DIABETES MELLITUS
     Dosage: 1 TAB, TID BEFORE MEALS
     Route: 048
  4. BYETTA [Concomitant]
     Indication: TYPE 2 DIABETES MELLITUS
  5. ENALAPRIL MALEATE [Concomitant]
     Indication: HYPERTENSION
     Dosage: 1 TAB, QD BEFORE BREAKFAST
     Route: 048
  6. HYDROCHLOROTHIAZIDE [Concomitant]
     Indication: HYPERTENSION
     Dosage: 1 TAB, QD
     Route: 048
  7. OMEPRAZOLE [Concomitant]
     Indication: DYSPEPSIA
     Dosage: 20 MG, UNK
     Route: 048
  8. PRAVASTATIN [Concomitant]
     Indication: BLOOD CHOLESTEROL INCREASED
     Dosage: UNK
     Route: 048

REACTIONS (3)
  - DIABETES MELLITUS INADEQUATE CONTROL [None]
  - HYPERTENSION [None]
  - RENAL IMPAIRMENT [None]
